FAERS Safety Report 9465642 (Version 6)
Quarter: 2014Q2

REPORT INFORMATION
  Report Type: Spontaneous
  Country: JP (occurrence: JP)
  Receive Date: 20130820
  Receipt Date: 20140415
  Transmission Date: 20141212
  Serious: Yes (Hospitalization, Other)
  Sender: FDA-Public Use
  Company Number: PHHY2013JP089578

PATIENT
  Age: 45 Year
  Sex: Male
  Weight: 73 kg

DRUGS (7)
  1. GILENYA [Suspect]
     Indication: MULTIPLE SCLEROSIS RELAPSE PROPHYLAXIS
     Dosage: 0.5 MG, QD
     Route: 048
     Dates: start: 20130716, end: 20130809
  2. GILENYA [Suspect]
     Dosage: 0.5 MG, QOD
     Route: 048
     Dates: start: 20130822
  3. JANUVIA [Concomitant]
     Indication: DIABETES MELLITUS
     Dosage: 50 MG, UNK
     Route: 048
     Dates: start: 20121004
  4. MYTEAR [Concomitant]
     Route: 048
  5. MAGLAX [Concomitant]
     Dosage: 330 MG, UNK
     Route: 048
  6. NEXUM [Concomitant]
     Indication: GASTRITIS
     Dosage: 20 MG, UNK
     Route: 048
  7. NEXUM [Concomitant]
     Dosage: 10 UNK, UNK
     Route: 048

REACTIONS (9)
  - Sepsis [Recovering/Resolving]
  - Blood creatine phosphokinase increased [Unknown]
  - C-reactive protein increased [Unknown]
  - Pyelonephritis [Recovered/Resolved]
  - White blood cell count increased [Unknown]
  - Lymphocyte percentage decreased [Unknown]
  - Neutrophil percentage increased [Unknown]
  - Urinary tract infection [Recovered/Resolved]
  - Prescribed underdose [Unknown]
